FAERS Safety Report 9254324 (Version 1)
Quarter: 2013Q2

REPORT INFORMATION
  Report Type: Spontaneous
  Country: FR (occurrence: None)
  Receive Date: 20130419
  Receipt Date: 20130419
  Transmission Date: 20140414
  Serious: Yes (Hospitalization)
  Sender: FDA-Public Use
  Company Number: SYM-2013-02734

PATIENT
  Age: 81 Year
  Sex: Female

DRUGS (4)
  1. MONO-TILDIEM [Suspect]
     Indication: PRODUCT USED FOR UNKNOWN INDICATION
     Route: 048
     Dates: end: 20130206
  2. ACEBUTOLOL HYDROCHLORIDE [Suspect]
     Indication: PRODUCT USED FOR UNKNOWN INDICATION
     Route: 048
     Dates: start: 2009, end: 20130206
  3. XANAX (ALPRAZOLAM) [Concomitant]
  4. PLAVIX (CLOPIDOGREL BISULFATE) [Concomitant]

REACTIONS (5)
  - Syncope [None]
  - Fall [None]
  - Face injury [None]
  - Malaise [None]
  - Bradycardia [None]
